FAERS Safety Report 6339768-6 (Version None)
Quarter: 2009Q3

REPORT INFORMATION
  Report Type: 
  Country: None (occurrence: None)
  Receive Date: 20090903
  Receipt Date: 20090824
  Transmission Date: 20100115
  Serious: Yes (Hospitalization, Other)
  Sender: FDA-Public Use
  Company Number: US-ELI_LILLY_AND_COMPANY-US200908002167

PATIENT
  Sex: Female
  Weight: 107.48 kg

DRUGS (7)
  1. CYMBALTA [Suspect]
     Indication: DEPRESSION
     Dosage: 60 MG, DAILY (1/D)
  2. PLAVIX [Concomitant]
     Dosage: 75 MG, UNK
  3. NEURONTIN [Concomitant]
     Dosage: 300 MG, 3/D
  4. SPIRONOLACTONE [Concomitant]
     Dosage: 25 MG, UNK
  5. LORTAB [Concomitant]
     Dosage: 7.5 MG, EVERY 4 HRS
  6. VERAPAMIL [Concomitant]
     Dosage: 120 MG, UNK
  7. WELLBUTRIN [Concomitant]
     Dosage: 150 MG, UNK

REACTIONS (3)
  - FACTOR X DEFICIENCY [None]
  - MOUTH HAEMORRHAGE [None]
  - TONGUE INJURY [None]
